FAERS Safety Report 9312623 (Version 2)
Quarter: 2013Q2

REPORT INFORMATION
  Report Type: Spontaneous
  Country: BE (occurrence: BE)
  Receive Date: 20130528
  Receipt Date: 20130619
  Transmission Date: 20140414
  Serious: Yes (Hospitalization)
  Sender: FDA-Public Use
  Company Number: BE-GLAXOSMITHKLINE-B0894409A

PATIENT
  Sex: Male

DRUGS (7)
  1. REQUIP [Suspect]
     Indication: PRODUCT USED FOR UNKNOWN INDICATION
     Route: 048
     Dates: start: 200401, end: 200904
  2. STALEVO [Concomitant]
     Route: 048
     Dates: start: 200502
  3. PROLOPA [Concomitant]
     Route: 048
     Dates: start: 200603
  4. AMANTADINE [Concomitant]
     Dates: start: 200705
  5. PROLOPA [Concomitant]
     Route: 048
     Dates: start: 200804
  6. AZILECT [Concomitant]
     Dates: start: 200904
  7. LEPONEX [Concomitant]
     Dates: start: 200904, end: 2011

REACTIONS (3)
  - Pathological gambling [Recovered/Resolved]
  - Mental disorder [Unknown]
  - Dependence [Unknown]
